FAERS Safety Report 5607111-3 (Version None)
Quarter: 2008Q1

REPORT INFORMATION
  Report Type: 
  Country: None (occurrence: None)
  Receive Date: 20080129
  Receipt Date: 20080117
  Transmission Date: 20080703
  Serious: Yes (Hospitalization, Other)
  Sender: FDA-Public Use
  Company Number: FR-PFIZER INC-2008005708

PATIENT
  Sex: Female

DRUGS (5)
  1. DALACINE IV [Suspect]
     Indication: CEREBRAL TOXOPLASMOSIS
     Route: 042
     Dates: start: 20070820, end: 20070918
  2. DI-HYDAN [Concomitant]
     Indication: CONVULSION
     Dosage: DAILY DOSE:300MG
     Route: 048
     Dates: start: 20070823, end: 20070918
  3. MALOCIDE [Concomitant]
  4. DRUG, UNSPECIFIED [Concomitant]
  5. TRUVADA [Concomitant]

REACTIONS (1)
  - CYTOLYTIC HEPATITIS [None]
